FAERS Safety Report 12629171 (Version 1)
Quarter: 2016Q3

REPORT INFORMATION
  Report Type: Spontaneous
  Country: FR (occurrence: FR)
  Receive Date: 20160808
  Receipt Date: 20160808
  Transmission Date: 20161109
  Serious: Yes (Hospitalization)
  Sender: FDA-Public Use
  Company Number: FR-TEVA-682372ISR

PATIENT
  Age: 52 Year
  Sex: Male

DRUGS (1)
  1. METHOTREXATE. [Suspect]
     Active Substance: METHOTREXATE
     Indication: PSORIASIS
     Route: 065

REACTIONS (5)
  - Skin ulcer [Unknown]
  - Dissociation [Unknown]
  - Toxicity to various agents [Unknown]
  - Skin toxicity [Unknown]
  - Dermatitis exfoliative [Unknown]
